FAERS Safety Report 8564005-1 (Version None)
Quarter: 2012Q3

REPORT INFORMATION
  Report Type: 
  Country: None (occurrence: None)
  Receive Date: 20120803
  Receipt Date: 20120801
  Transmission Date: 20120928
  Serious: Yes (Death)
  Sender: FDA-Public Use
  Company Number: PHEH2012US015110

PATIENT
  Sex: Female

DRUGS (10)
  1. MACROBID [Concomitant]
     Dosage: 100 MG, UNK
  2. LASIX [Concomitant]
     Dosage: 20 MG, UNK
  3. POTASSIUM [Concomitant]
     Dosage: 75 MG, UNK
  4. TYLENOL (CAPLET) [Concomitant]
     Dosage: 325 MG, UNK
  5. AFINITOR [Suspect]
     Dosage: 5 MG, UNK
     Route: 048
  6. DETACHOL [Concomitant]
  7. PRAVASTATIN [Concomitant]
     Dosage: 10 MG, UNK
  8. LISINOPRIL [Concomitant]
     Dosage: 2.5 MG, UNK
  9. METOPROLOL TARTRATE [Concomitant]
     Dosage: 25 MG, UNK
  10. CALCIUM [Concomitant]

REACTIONS (1)
  - DEATH [None]
